FAERS Safety Report 8808180 (Version 3)
Quarter: 2013Q1

REPORT INFORMATION
  Report Type: Report from Study
  Country: CA (occurrence: CA)
  Receive Date: 20120925
  Receipt Date: 20130207
  Transmission Date: 20140127
  Serious: Yes (Hospitalization, Other)
  Sender: FDA-Public Use
  Company Number: CA-ABBOTT-12P-028-0981470-00

PATIENT
  Age: 77 Year
  Sex: Male
  Weight: 85.35 kg

DRUGS (4)
  1. LUPRON DEPOT [Suspect]
     Indication: PROSTATE CANCER
     Route: 058
     Dates: start: 20110920
  2. RADIOTHERAPY [Suspect]
     Indication: PRODUCT USED FOR UNKNOWN INDICATION
  3. TYLENOL WITH CODEIN #3 [Suspect]
  4. ACETYLSALICYLIC ACID [Concomitant]
     Indication: PRODUCT USED FOR UNKNOWN INDICATION

REACTIONS (8)
  - Prostatomegaly [Unknown]
  - Gastrointestinal haemorrhage [Unknown]
  - Urinary retention [Unknown]
  - Haemoglobin decreased [Unknown]
  - Diarrhoea [Unknown]
  - Dysuria [Unknown]
  - Urinary retention [Recovered/Resolved]
  - Dizziness [Unknown]
